FAERS Safety Report 6773050-8 (Version None)
Quarter: 2010Q2

REPORT INFORMATION
  Report Type: 
  Country: None (occurrence: None)
  Receive Date: 20100614
  Receipt Date: 20100601
  Transmission Date: 20101027
  Serious: Yes (Disabling, Other)
  Sender: FDA-Public Use
  Company Number: ACO_00994_2010

PATIENT
  Sex: Female
  Weight: 47.6277 kg

DRUGS (4)
  1. AMPYRA [Suspect]
     Indication: MULTIPLE SCLEROSIS
     Dosage: 10 MG 1X ORAL
     Route: 048
     Dates: start: 20100528, end: 20100528
  2. SIMVASTATIN [Concomitant]
  3. STOOL SOFTENER [Concomitant]
  4. VICODIN [Concomitant]

REACTIONS (5)
  - BACK PAIN [None]
  - CONSTIPATION [None]
  - DIZZINESS [None]
  - INCOHERENT [None]
  - PAIN IN EXTREMITY [None]
